FAERS Safety Report 13429038 (Version 2)
Quarter: 2017Q3

REPORT INFORMATION
  Report Type: Report from Study
  Country: CA (occurrence: CA)
  Receive Date: 20170411
  Receipt Date: 20170726
  Transmission Date: 20171127
  Serious: Yes (Hospitalization)
  Sender: FDA-Public Use
  Company Number: CA-ROCHE-1914122

PATIENT
  Age: 80 Year
  Sex: Female
  Weight: 46 kg

DRUGS (10)
  1. ASA [Concomitant]
     Active Substance: ASPIRIN
     Route: 065
  2. VEMURAFENIB. [Suspect]
     Active Substance: VEMURAFENIB
     Indication: MALIGNANT MELANOMA
     Dosage: LAST DOSE PRIOR TO EVENT ONSET: 24/FEB/2017
     Route: 048
     Dates: start: 20170213, end: 20170224
  3. COBIMETINIB. [Suspect]
     Active Substance: COBIMETINIB
     Indication: MALIGNANT MELANOMA
     Dosage: LAST DOSE PRIOR TO EVENT ONSET: 24/FEB/2017
     Route: 048
     Dates: start: 20170213, end: 20170224
  4. VEMURAFENIB. [Suspect]
     Active Substance: VEMURAFENIB
     Indication: METASTASES TO LYMPH NODES
  5. AMLODIPINE [Concomitant]
     Active Substance: AMLODIPINE BESYLATE
     Indication: HYPERTENSION
     Route: 065
  6. ATORVASTATIN [Concomitant]
     Active Substance: ATORVASTATIN
     Indication: DYSLIPIDAEMIA
     Route: 065
  7. METFORMIN [Concomitant]
     Active Substance: METFORMIN HYDROCHLORIDE
     Indication: DIABETES MELLITUS
     Route: 065
  8. PERINDOPRIL [Concomitant]
     Active Substance: PERINDOPRIL
     Indication: HYPERTENSION
     Route: 065
  9. RISEDRONATE [Concomitant]
     Active Substance: RISEDRONATE SODIUM
     Indication: OSTEOPOROSIS
     Route: 065
  10. COBIMETINIB. [Suspect]
     Active Substance: COBIMETINIB
     Indication: METASTASES TO LYMPH NODES

REACTIONS (1)
  - Hypersensitivity [Recovered/Resolved]

NARRATIVE: CASE EVENT DATE: 20170224
